FAERS Safety Report 24438861 (Version 1)
Quarter: 2024Q4

REPORT INFORMATION
  Report Type: Report from Study
  Country: US (occurrence: US)
  Receive Date: 20241015
  Receipt Date: 20241015
  Transmission Date: 20250114
  Serious: Yes (Hospitalization)
  Sender: JOHNSON AND JOHNSON
  Company Number: US-JNJFOC-20240784904

PATIENT
  Age: 51 Year
  Sex: Female

DRUGS (3)
  1. SIMPONI [Suspect]
     Active Substance: GOLIMUMAB
     Indication: Rheumatoid arthritis
     Route: 058
     Dates: start: 20240416
  2. SIMPONI [Suspect]
     Active Substance: GOLIMUMAB
     Route: 058
  3. SIMPONI [Suspect]
     Active Substance: GOLIMUMAB
     Route: 058
     Dates: start: 20240928

REACTIONS (4)
  - Pericardial effusion [Not Recovered/Not Resolved]
  - Migraine [Recovered/Resolved]
  - Asthenia [Unknown]
  - COVID-19 [Recovering/Resolving]

NARRATIVE: CASE EVENT DATE: 20240101
